FAERS Safety Report 12394521 (Version 2)
Quarter: 2016Q2

REPORT INFORMATION
  Report Type: Spontaneous
  Country: US (occurrence: US)
  Receive Date: 20160523
  Receipt Date: 20160628
  Transmission Date: 20160815
  Serious: No
  Sender: FDA-Public Use
  Company Number: US-PFIZER INC-2016244003

PATIENT
  Age: 65 Year
  Sex: Female
  Weight: 47.63 kg

DRUGS (1)
  1. MISOPROSTOL. [Suspect]
     Active Substance: MISOPROSTOL
     Indication: BILE OUTPUT INCREASED
     Dosage: 100 UG, 1X/DAY (ONE 100MCG TABLET BY MOUTH BEFORE DINNER)
     Route: 048
     Dates: start: 20160429, end: 20160430

REACTIONS (3)
  - Nipple pain [Not Recovered/Not Resolved]
  - Pruritus [Recovering/Resolving]
  - Breast pain [Not Recovered/Not Resolved]

NARRATIVE: CASE EVENT DATE: 20160501
